FAERS Safety Report 20745810 (Version 1)
Quarter: 2022Q2

REPORT INFORMATION
  Report Type: Spontaneous
  Country: US (occurrence: US)
  Receive Date: 20220425
  Receipt Date: 20220425
  Transmission Date: 20220720
  Serious: Yes (Other)
  Sender: FDA-Public Use
  Company Number: US-UCBSA-2022022540

PATIENT
  Sex: Male

DRUGS (1)
  1. NEUPRO [Suspect]
     Active Substance: ROTIGOTINE
     Indication: Restless legs syndrome
     Dosage: 6 MILLIGRAM, ONCE DAILY (QD)
     Dates: start: 20120401

REACTIONS (4)
  - Prostate cancer [Not Recovered/Not Resolved]
  - Oedema [Unknown]
  - Dizziness [Unknown]
  - Overdose [Unknown]

NARRATIVE: CASE EVENT DATE: 20120401
